FAERS Safety Report 20978049 (Version 1)
Quarter: 2022Q2

REPORT INFORMATION
  Report Type: Spontaneous
  Country: US (occurrence: US)
  Receive Date: 20220618
  Receipt Date: 20220618
  Transmission Date: 20220721
  Serious: Yes (Hospitalization, Other)
  Sender: FDA-Public Use
  Company Number: US-TEVA-2022-US-2046176

PATIENT
  Age: 63 Year
  Sex: Female

DRUGS (10)
  1. LISINOPRIL [Suspect]
     Active Substance: LISINOPRIL
     Dosage: 40 MILLIGRAM DAILY; DOSE: 20 MG BID
     Route: 065
     Dates: end: 202205
  2. CARVEDILOL [Suspect]
     Active Substance: CARVEDILOL
     Dosage: 40 MILLIGRAM DAILY; DOSE: 20 MG TWICE DAILY
     Route: 065
     Dates: end: 202205
  3. ORENITRAM [Suspect]
     Active Substance: TREPROSTINIL
     Indication: Pulmonary arterial hypertension
     Dosage: 3 MILLIGRAM DAILY; DOSE: 1 MG TID (EXTENDED RELEASE TABLET)
     Route: 048
     Dates: start: 20211022
  4. ORENITRAM [Suspect]
     Active Substance: TREPROSTINIL
     Dosage: .375 MILLIGRAM DAILY; DOSE: 0.125 MG TID (EXTENDED RELEASE TABLET)
     Route: 048
  5. ORENITRAM [Suspect]
     Active Substance: TREPROSTINIL
     Dosage: 8.25 MILLIGRAM DAILY; DOSE: 2.75 MG TID (EXTENDED RELEASE TABLET)
     Route: 048
     Dates: start: 20211023
  6. ORENITRAM [Suspect]
     Active Substance: TREPROSTINIL
     Dosage: 9 MILLIGRAM DAILY; DOSE: 3 MG TID (2 TABLETS OF 0.25 MG AND 1 TABLET OF 2.5 MG)
     Route: 048
  7. ORENITRAM [Suspect]
     Active Substance: TREPROSTINIL
     Dosage: 7.5 MILLIGRAM DAILY; DOSE:2.5 MG TID
     Route: 048
     Dates: start: 202205, end: 20220526
  8. ORENITRAM [Suspect]
     Active Substance: TREPROSTINIL
     Route: 048
     Dates: start: 20211023
  9. ADEMPAS [Suspect]
     Active Substance: RIOCIGUAT
     Route: 065
     Dates: start: 20220325
  10. ADEMPAS [Suspect]
     Active Substance: RIOCIGUAT
     Dosage: DOSE: 2MG TITRATED DOSE
     Route: 065
     Dates: start: 20220511

REACTIONS (12)
  - Clostridium difficile infection [Unknown]
  - Dizziness [Recovering/Resolving]
  - Migraine [Recovering/Resolving]
  - Diarrhoea [Recovering/Resolving]
  - Arthralgia [Recovering/Resolving]
  - Pain in extremity [Unknown]
  - Faeces soft [Unknown]
  - Fatigue [Unknown]
  - Hypotension [Unknown]
  - Back pain [Unknown]
  - Somnolence [Recovering/Resolving]
  - Oedema [Recovered/Resolved]

NARRATIVE: CASE EVENT DATE: 20210101
